FAERS Safety Report 19131174 (Version 1)
Quarter: 2021Q2

REPORT INFORMATION
  Report Type: Spontaneous
  Country: US (occurrence: US)
  Receive Date: 20210413
  Receipt Date: 20210413
  Transmission Date: 20210717
  Serious: Yes (Other)
  Sender: FDA-Public Use
  Company Number: US-GLAXOSMITHKLINE-US2021GSK082819

PATIENT
  Sex: Female

DRUGS (6)
  1. RANITIDINE CAPSULE [Suspect]
     Active Substance: RANITIDINE
     Indication: ABDOMINAL PAIN UPPER
     Dosage: UNKNOWN AT THIS TIME BOTH
     Route: 065
     Dates: start: 201002, end: 201612
  2. ZANTAC [Suspect]
     Active Substance: RANITIDINE HYDROCHLORIDE
     Indication: ABDOMINAL PAIN UPPER
     Dosage: UNKNOWN AT THIS TIME BOTH
     Route: 065
     Dates: start: 201002, end: 201612
  3. RANITIDINE. [Suspect]
     Active Substance: RANITIDINE
     Indication: ABDOMINAL PAIN UPPER
     Dosage: UNKNOWN AT THIS TIME BOTH
     Route: 065
     Dates: start: 201002, end: 201612
  4. RANITIDINE. [Suspect]
     Active Substance: RANITIDINE
     Indication: ABDOMINAL PAIN UPPER
     Dosage: UNKNOWN AT THIS TIME BOTH
     Route: 065
     Dates: start: 201002, end: 201612
  5. ZANTAC [Suspect]
     Active Substance: RANITIDINE HYDROCHLORIDE
     Indication: ABDOMINAL PAIN UPPER
     Dosage: UNKNOWN AT THIS TIME BOTH
     Route: 065
     Dates: start: 201002, end: 201612
  6. RANITIDINE. [Suspect]
     Active Substance: RANITIDINE
     Indication: ABDOMINAL PAIN UPPER
     Dosage: UNKNOWN AT THIS TIME BOTH
     Route: 065
     Dates: start: 201002, end: 201612

REACTIONS (1)
  - Colorectal cancer [Unknown]
